FAERS Safety Report 9441135 (Version 2)
Quarter: 2013Q3

REPORT INFORMATION
  Report Type: Spontaneous
  Country: JP (occurrence: JP)
  Receive Date: 20130805
  Receipt Date: 20130808
  Transmission Date: 20140515
  Serious: Yes (Hospitalization)
  Sender: FDA-Public Use
  Company Number: JP-GLAXOSMITHKLINE-B0912590A

PATIENT
  Age: 42 Year
  Sex: Male

DRUGS (5)
  1. LAMICTAL [Suspect]
     Indication: BIPOLAR DISORDER
     Route: 048
  2. PREDNISOLONE [Concomitant]
     Route: 065
  3. SODIUM VALPROATE [Concomitant]
     Route: 048
  4. ECARD [Concomitant]
     Route: 048
  5. METGLUCO [Concomitant]
     Route: 048

REACTIONS (2)
  - Skin disorder [Recovering/Resolving]
  - Rash [Recovering/Resolving]
